FAERS Safety Report 4533779-9 (Version None)
Quarter: 2004Q4

REPORT INFORMATION
  Report Type: 
  Country: None (occurrence: None)
  Receive Date: 20041206
  Receipt Date: 20041019
  Transmission Date: 20050328
  Serious: No
  Sender: FDA-Public Use
  Company Number: USA041081644

PATIENT
  Age: 54 Year
  Sex: Female
  Weight: 74 kg

DRUGS (3)
  1. CYMBALTA [Suspect]
     Indication: DEPRESSION
     Dosage: 30 MG/1 DAY
     Dates: start: 20041018
  2. DIOVAN [Concomitant]
  3. ALLEGRA [Concomitant]

REACTIONS (4)
  - NASAL CONGESTION [None]
  - NASOPHARYNGITIS [None]
  - PHARYNGOLARYNGEAL PAIN [None]
  - SINUS PAIN [None]
